FAERS Safety Report 8054008 (Version 3)
Quarter: 2014Q3

REPORT INFORMATION
  Report Type: Spontaneous
  Country: ES (occurrence: ES)
  Receive Date: 20110726
  Receipt Date: 20140729
  Transmission Date: 20150326
  Serious: Yes (Hospitalization, Other)
  Sender: FDA-Public Use
  Company Number: ES-RANBAXY-2011RR-46244

PATIENT
  Age: 63 Day
  Sex: Female

DRUGS (1)
  1. PARACETAMOL [Suspect]
     Active Substance: ACETAMINOPHEN
     Indication: MATERNAL USE OF ILLICIT DRUGS
     Dosage: UNK
     Route: 063

REACTIONS (2)
  - Respiratory syncytial virus bronchiolitis [Unknown]
  - Exposure during breast feeding [Unknown]
